FAERS Safety Report 9137134 (Version 2)
Quarter: 2013Q2

REPORT INFORMATION
  Report Type: Spontaneous
  Country: US (occurrence: US)
  Receive Date: 20130304
  Receipt Date: 20130412
  Transmission Date: 20140414
  Serious: Yes (Hospitalization, Other)
  Sender: FDA-Public Use
  Company Number: US-ELI_LILLY_AND_COMPANY-US201302008855

PATIENT
  Age: 65 Year
  Sex: Female
  Weight: 51.47 kg

DRUGS (14)
  1. FORTEO [Suspect]
     Indication: OSTEOPOROSIS
     Dosage: 20 UG, QD
     Route: 058
     Dates: start: 201104
  2. SERTRALINE [Concomitant]
     Dosage: 100 MG, QD
  3. COUMADIN [Concomitant]
     Dosage: 5 MG, 4/W
  4. COUMADIN [Concomitant]
     Dosage: 7.5 MG, 3/W
  5. CORSOTALOL [Concomitant]
     Dosage: 300 MG, TID
  6. OXYCODONE [Concomitant]
     Dosage: 20 MG, PRN
  7. LEVOTHYROXINE [Concomitant]
     Dosage: 50 UG, UNK
  8. GABAPENTIN [Concomitant]
     Dosage: 400 MG, TID
  9. FLONASE [Concomitant]
     Dosage: UNK
  10. SYMBICORT [Concomitant]
     Dosage: UNK
  11. FLUOXETINE [Concomitant]
     Dosage: 10 MG, QD
  12. PERCOCET [Concomitant]
     Dosage: UNK
  13. SOMA [Concomitant]
     Dosage: UNK
  14. FENTANYL [Concomitant]
     Dosage: UNK

REACTIONS (10)
  - Asthma [Recovered/Resolved]
  - Asthma [Unknown]
  - Bronchopneumonia [Recovered/Resolved]
  - Pulmonary embolism [Recovered/Resolved]
  - Transient ischaemic attack [Unknown]
  - Pneumonia [Unknown]
  - Chronic obstructive pulmonary disease [Unknown]
  - Fall [Unknown]
  - Hypothyroidism [Unknown]
  - Pain [Not Recovered/Not Resolved]
